FAERS Safety Report 8895728 (Version 1)
Quarter: 2012Q4

REPORT INFORMATION
  Report Type: 
  Country: FR (occurrence: FR)
  Receive Date: 20121108
  Receipt Date: 20121108
  Transmission Date: 20130627
  Serious: Yes (Disabling)
  Sender: FDA-Public Use
  Company Number: FR-MERCK-1211FRA003491

PATIENT
  Age: 65 Year
  Sex: Female

DRUGS (6)
  1. SIMVASTATIN [Suspect]
     Dosage: 1 DF, qd
     Dates: start: 2011
  2. DEPAMIDE [Concomitant]
  3. METFORMIN [Concomitant]
  4. AMLOR [Concomitant]
  5. KARDEGIC [Concomitant]
  6. OLMESARTAN MEDOXOMIL [Concomitant]

REACTIONS (2)
  - Tendon rupture [Not Recovered/Not Resolved]
  - Tendon rupture [Not Recovered/Not Resolved]
